FAERS Safety Report 24232781 (Version 7)
Quarter: 2025Q1

REPORT INFORMATION
  Report Type: Spontaneous
  Country: US (occurrence: US)
  Receive Date: 20240821
  Receipt Date: 20250122
  Transmission Date: 20250408
  Serious: Yes (Other)
  Sender: PFIZER
  Company Number: US-PFIZER INC-202400237780

PATIENT
  Age: 14 Year
  Sex: Male
  Weight: 113.4 kg

DRUGS (14)
  1. GENOTROPIN [Suspect]
     Active Substance: SOMATROPIN
     Indication: Growth hormone deficiency
     Dosage: 3.4 MG, DAILY/3.4 EVERY DAY INJECTION
     Dates: start: 202402
  2. LANTUS [Suspect]
     Active Substance: INSULIN GLARGINE
     Indication: Type 2 diabetes mellitus
     Dosage: 40 UNITS AT NIGHT BY INJECTION
     Dates: start: 202402
  3. HUMALOG [Concomitant]
     Active Substance: INSULIN LISPRO
     Indication: Type 2 diabetes mellitus
     Dates: start: 2024
  4. MYCOPHENOLIC ACID [Concomitant]
     Active Substance: MYCOPHENOLIC ACID
     Indication: Kidney transplant rejection
     Dosage: 1000MG TWICE A DAY ORALLY
     Route: 048
     Dates: start: 20151215
  5. SODIUM BICARBONATE [Concomitant]
     Active Substance: SODIUM BICARBONATE
     Indication: Chronic kidney disease
     Dosage: 650MG; TAKES 3 TABLETS 3 TIMES A DAY ORALLY
     Route: 048
     Dates: start: 2021
  6. ENALAPRIL [Concomitant]
     Active Substance: ENALAPRIL
     Indication: Hypertension
     Dosage: 5MG ONE TWICE A DAY ORALLY
     Route: 048
     Dates: start: 2019
  7. LABETALOL [Concomitant]
     Active Substance: LABETALOL
     Indication: Hypertension
     Dosage: 150MG TWICE A DAY ORALLY
     Route: 048
     Dates: start: 2019
  8. XYZAL [Concomitant]
     Active Substance: LEVOCETIRIZINE DIHYDROCHLORIDE
     Indication: Multiple allergies
     Dosage: 5MG DAILY ORALLY
     Route: 048
     Dates: start: 2023
  9. FAMOTIDINE [Concomitant]
     Active Substance: FAMOTIDINE
     Indication: Gastrooesophageal reflux disease
     Dosage: 20MG DAILY ORALLY
     Route: 048
     Dates: start: 2023
  10. CYCLOSPORINE [Concomitant]
     Active Substance: CYCLOSPORINE
     Indication: Immunosuppression
     Route: 048
     Dates: start: 2020
  11. VALCYTE [Concomitant]
     Active Substance: VALGANCICLOVIR HYDROCHLORIDE
     Indication: Prophylaxis
     Dosage: 450 MG, DAILY
     Dates: start: 20240724
  12. BACTRIM [Concomitant]
     Active Substance: SULFAMETHOXAZOLE\TRIMETHOPRIM
     Indication: Immunodeficiency
     Route: 048
     Dates: start: 20240724
  13. OZEMPIC [Concomitant]
     Active Substance: SEMAGLUTIDE
     Indication: Type 2 diabetes mellitus
     Dosage: 0.5 DOSE WEEKLY BY INJECTION
     Dates: start: 20240710
  14. CALCITRIOL [Concomitant]
     Active Substance: CALCITRIOL
     Indication: Blood parathyroid hormone increased
     Dosage: 0.5 UG, DAILY
     Route: 048
     Dates: start: 20240802

REACTIONS (9)
  - Kidney transplant rejection [Unknown]
  - Disease recurrence [Unknown]
  - Drug dose omission by device [Unknown]
  - Device use error [Unknown]
  - Poor quality device used [Unknown]
  - Device breakage [Unknown]
  - Injection site bruising [Recovering/Resolving]
  - Injection site mass [Recovering/Resolving]
  - Injection site pain [Recovering/Resolving]

NARRATIVE: CASE EVENT DATE: 20240724
